FAERS Safety Report 13576251 (Version 3)
Quarter: 2017Q2

REPORT INFORMATION
  Report Type: Spontaneous
  Country: KR (occurrence: KR)
  Receive Date: 20170524
  Receipt Date: 20170601
  Transmission Date: 20170830
  Serious: Yes (Other)
  Sender: FDA-Public Use
  Company Number: KR-009507513-1701KOR008625

PATIENT
  Age: 61 Year
  Sex: Male
  Weight: 73.8 kg

DRUGS (33)
  1. EMEND (FOSAPREPITANT DIMEGLUMINE) [Suspect]
     Active Substance: FOSAPREPITANT DIMEGLUMINE
     Dosage: 150 MG, ONCE
     Route: 042
     Dates: start: 20161007, end: 20161007
  2. EMEND (FOSAPREPITANT DIMEGLUMINE) [Suspect]
     Active Substance: FOSAPREPITANT DIMEGLUMINE
     Dosage: 150 MG, ONCE
     Route: 042
     Dates: start: 20161027, end: 20161027
  3. FLUOROURACIL. [Concomitant]
     Active Substance: FLUOROURACIL
     Dosage: 2752 MG, QD (CYCLE 3), STRENGTH: 1000MG/20ML
     Route: 042
     Dates: start: 20161007, end: 20161008
  4. TAGAMET [Concomitant]
     Active Substance: CIMETIDINE
     Indication: PROPHYLAXIS
     Dosage: 2 ML, ONCE, STRENGTH: 200MG/2ML
     Route: 042
     Dates: start: 20160908, end: 20160908
  5. AVASTIN [Concomitant]
     Active Substance: BEVACIZUMAB
     Dosage: 335 MG, ONCE (CYCLE 4)
     Route: 042
     Dates: start: 20161027, end: 20161027
  6. FLUOROURACIL. [Concomitant]
     Active Substance: FLUOROURACIL
     Dosage: 2752 MG, QD (CYCLE 2), STRENGTH: 1000MG/20ML
     Route: 042
     Dates: start: 20160923, end: 20160924
  7. AVASTIN [Concomitant]
     Active Substance: BEVACIZUMAB
     Dosage: 330 MG, ONCE (CYCLE 6)
     Route: 042
     Dates: start: 20161201, end: 20161201
  8. FLUOROURACIL. [Concomitant]
     Active Substance: FLUOROURACIL
     Dosage: 2752 MG, QD (CYCLE 4), STRENGTH: 1000MG/20ML
     Route: 042
     Dates: start: 20161027, end: 20161028
  9. TAGAMET [Concomitant]
     Active Substance: CIMETIDINE
     Dosage: 200 MG, ONCE, STRENGTH: 200MG/2ML
     Route: 042
     Dates: start: 20161117, end: 20161117
  10. TAGAMET [Concomitant]
     Active Substance: CIMETIDINE
     Dosage: 200 MG, ONCE, STRENGTH: 200MG/2ML
     Route: 042
     Dates: start: 20161201, end: 20161201
  11. ALOXI [Concomitant]
     Active Substance: PALONOSETRON HYDROCHLORIDE
     Dosage: 5 ML, ONCE
     Route: 042
     Dates: start: 20161007, end: 20161007
  12. EMEND (FOSAPREPITANT DIMEGLUMINE) [Suspect]
     Active Substance: FOSAPREPITANT DIMEGLUMINE
     Dosage: 150 MG, ONCE
     Route: 042
     Dates: start: 20160923, end: 20160923
  13. EMEND (FOSAPREPITANT DIMEGLUMINE) [Suspect]
     Active Substance: FOSAPREPITANT DIMEGLUMINE
     Dosage: 150 MG, ONCE
     Route: 042
     Dates: start: 20161117, end: 20161117
  14. AVASTIN [Concomitant]
     Active Substance: BEVACIZUMAB
     Indication: RECTAL CANCER
     Dosage: 335 MG, ONCE (CYCLE 1)
     Route: 042
     Dates: start: 20160908, end: 20160908
  15. ALOXI [Concomitant]
     Active Substance: PALONOSETRON HYDROCHLORIDE
     Dosage: 5 ML, ONCE
     Route: 042
     Dates: start: 20161117, end: 20161117
  16. TAGAMET [Concomitant]
     Active Substance: CIMETIDINE
     Dosage: 200 MG, ONCE, STRENGTH: 200MG/2ML
     Route: 042
     Dates: start: 20160923, end: 20160923
  17. EMEND (FOSAPREPITANT DIMEGLUMINE) [Suspect]
     Active Substance: FOSAPREPITANT DIMEGLUMINE
     Dosage: 150 MG, ONCE
     Route: 042
     Dates: start: 20161201, end: 20161201
  18. AVASTIN [Concomitant]
     Active Substance: BEVACIZUMAB
     Dosage: 335 MG, ONCE (CYCLE 2)
     Route: 042
     Dates: start: 20160923, end: 20160923
  19. AVASTIN [Concomitant]
     Active Substance: BEVACIZUMAB
     Dosage: 330 MG, ONCE (CYCLE 5)
     Route: 042
     Dates: start: 20161117, end: 20161117
  20. DEXAMETHASONE SODIUM PHOSPHATE. [Concomitant]
     Active Substance: DEXAMETHASONE SODIUM PHOSPHATE
     Indication: PROPHYLAXIS OF NAUSEA AND VOMITING
     Dosage: 10 MG, ONCE, STRENGTH: 5MG/ML
     Route: 042
     Dates: start: 20160908, end: 20160908
  21. ALOXI [Concomitant]
     Active Substance: PALONOSETRON HYDROCHLORIDE
     Dosage: 5 ML, ONCE
     Route: 042
     Dates: start: 20161201, end: 20161201
  22. TAGAMET [Concomitant]
     Active Substance: CIMETIDINE
     Dosage: 200 MG, ONCE, STRENGTH: 200MG/2ML
     Route: 042
     Dates: start: 20161007, end: 20161007
  23. TAGAMET [Concomitant]
     Active Substance: CIMETIDINE
     Dosage: 200 MG, ONCE, STRENGTH: 200MG/2ML
     Route: 042
     Dates: start: 20161027, end: 20161027
  24. ATROPINE SULFATE. [Concomitant]
     Active Substance: ATROPINE SULFATE
     Indication: PROPHYLAXIS
     Dosage: 0.5 MG, ONCE, STRENGTH: 0.5MG/ML
     Route: 058
     Dates: start: 20160908, end: 20160908
  25. KETOROLAC TROMETHAMINE. [Concomitant]
     Active Substance: KETOROLAC TROMETHAMINE
     Indication: PAIN PROPHYLAXIS
     Dosage: 30 MG, ONCE
     Route: 042
     Dates: start: 20160921, end: 20160921
  26. EMEND (FOSAPREPITANT DIMEGLUMINE) [Suspect]
     Active Substance: FOSAPREPITANT DIMEGLUMINE
     Indication: PROPHYLAXIS OF NAUSEA AND VOMITING
     Dosage: 150 MG, ONCE
     Route: 042
     Dates: start: 20160908, end: 20160908
  27. CALMTOP [Concomitant]
     Indication: RECTAL CANCER
     Dosage: 309 MG, ONCE (CYCLE 1); STRENGTH REPORTED AS ^100MG/5ML^
     Route: 042
     Dates: start: 20160908, end: 20160908
  28. FLUOROURACIL. [Concomitant]
     Active Substance: FLUOROURACIL
     Indication: RECTAL CANCER
     Dosage: 2752 MG, QD (CYCLE 1), STRENGTH: 1000MG/20ML
     Route: 042
     Dates: start: 20160908, end: 20160909
  29. FLUOROURACIL. [Concomitant]
     Active Substance: FLUOROURACIL
     Dosage: 2738 MG, QD (CYCLE 5), STRENGTH: 1000MG/20ML
     Route: 042
     Dates: start: 20161117, end: 20161118
  30. FLUOROURACIL. [Concomitant]
     Active Substance: FLUOROURACIL
     Dosage: 2738 MG, QD (CYCLE 6), STRENGTH: 1000MG/20ML
     Route: 042
     Dates: start: 20161201, end: 20161202
  31. ALOXI [Concomitant]
     Active Substance: PALONOSETRON HYDROCHLORIDE
     Indication: PROPHYLAXIS OF NAUSEA AND VOMITING
     Dosage: 5 ML, ONCE
     Route: 042
     Dates: start: 20160908, end: 20160908
  32. ALOXI [Concomitant]
     Active Substance: PALONOSETRON HYDROCHLORIDE
     Dosage: 5 ML, ONCE
     Route: 042
     Dates: start: 20160923, end: 20160923
  33. ALOXI [Concomitant]
     Active Substance: PALONOSETRON HYDROCHLORIDE
     Dosage: 5 ML, ONCE
     Route: 042
     Dates: start: 20161027, end: 20161027

REACTIONS (5)
  - Neutropenia [Recovered/Resolved]
  - Pyrexia [Recovered/Resolved]
  - Neutropenia [Recovered/Resolved]
  - Amylase increased [Recovering/Resolving]
  - Gamma-glutamyltransferase increased [Recovering/Resolving]

NARRATIVE: CASE EVENT DATE: 20160921
